FAERS Safety Report 5082692-X (Version None)
Quarter: 2006Q3

REPORT INFORMATION
  Report Type: 
  Country: None (occurrence: None)
  Receive Date: 20060816
  Receipt Date: 20060816
  Transmission Date: 20061208
  Serious: Yes (Other)
  Sender: FDA-Public Use
  Company Number: None

PATIENT
  Age: 33 Year
  Sex: Female
  Weight: 82.5547 kg

DRUGS (2)
  1. PROMETHAZINE HCL [Suspect]
     Indication: PROPHYLAXIS OF NAUSEA AND VOMITING
     Dosage: 12.5 MG   ONCE  IV BOLUS
     Route: 040
     Dates: start: 20060815, end: 20060815
  2. LACTATED RINGER'S [Concomitant]

REACTIONS (2)
  - DYSKINESIA [None]
  - MUSCLE SPASMS [None]
